FAERS Safety Report 18171937 (Version 9)
Quarter: 2022Q4

REPORT INFORMATION
  Report Type: Report from Study
  Country: US (occurrence: US)
  Receive Date: 20200819
  Receipt Date: 20221020
  Transmission Date: 20230112
  Serious: Yes (Hospitalization, Other)
  Sender: FDA-Public Use
  Company Number: US-SHIRE-US202026749

PATIENT
  Age: 66 Year
  Sex: Female
  Weight: 61 kg

DRUGS (58)
  1. HUMAN IMMUNOGLOBULIN G [Suspect]
     Active Substance: HUMAN IMMUNOGLOBULIN G
     Indication: Immunodeficiency common variable
     Dosage: 16 GRAM, Q2WEEKS
     Route: 058
     Dates: start: 20200804
  2. HUMAN IMMUNOGLOBULIN G [Suspect]
     Active Substance: HUMAN IMMUNOGLOBULIN G
     Indication: Hypergammaglobulinaemia
     Dosage: 16 GRAM, Q2WEEKS
     Route: 058
     Dates: start: 20200806
  3. HYQVIA [Suspect]
     Active Substance: HUMAN IMMUNOGLOBULIN G\HYALURONIDASE RECOMBINANT HUMAN
     Indication: Immunodeficiency common variable
     Dosage: 30 GRAM, Q4WEEKS
     Route: 058
     Dates: start: 20201205
  4. HYQVIA [Suspect]
     Active Substance: HUMAN IMMUNOGLOBULIN G\HYALURONIDASE RECOMBINANT HUMAN
     Indication: Hypergammaglobulinaemia
     Dosage: 40 GRAM, Q4WEEKS
     Route: 058
     Dates: start: 20201205
  5. DEPAKOTE [Concomitant]
     Active Substance: DIVALPROEX SODIUM
     Route: 065
  6. ASPIRIN [Concomitant]
     Active Substance: ASPIRIN
     Route: 065
  7. SIMETHICONE (DIMETHICONE) [Concomitant]
     Active Substance: DIMETHICONE
     Route: 065
  8. KETOROLAC TROMETHAMINE [Concomitant]
     Active Substance: KETOROLAC TROMETHAMINE
     Route: 065
  9. CALCIUM [Concomitant]
     Active Substance: CALCIUM
     Route: 065
  10. HYDROXYZINE HYDROCHLORIDE [Concomitant]
     Active Substance: HYDROXYZINE HYDROCHLORIDE
     Route: 065
  11. VITAMIN E [Concomitant]
     Active Substance: .ALPHA.-TOCOPHEROL
     Route: 065
  12. LIDOCAINE [Concomitant]
     Active Substance: LIDOCAINE
     Route: 065
  13. CHOLECALCIFEROL [Concomitant]
     Active Substance: CHOLECALCIFEROL
     Route: 065
  14. VITAMIN B12 + FOLIC ACID [Concomitant]
     Route: 065
  15. COLACE [Concomitant]
     Active Substance: DOCUSATE SODIUM
     Route: 065
  16. ACETAMINOPHEN [Concomitant]
     Active Substance: ACETAMINOPHEN
     Route: 065
  17. DIPHENHYDRAMINE [Concomitant]
     Active Substance: DIPHENHYDRAMINE
     Route: 065
  18. LASIX [Concomitant]
     Active Substance: FUROSEMIDE
     Route: 065
  19. EPINEPHRINE [Concomitant]
     Active Substance: EPINEPHRINE
     Route: 065
  20. OMEPRAZOLE [Concomitant]
     Active Substance: OMEPRAZOLE
     Route: 065
  21. VISTARIL [Concomitant]
     Active Substance: HYDROXYZINE PAMOATE
     Route: 065
  22. ALBUTEROL SULFATE [Concomitant]
     Active Substance: ALBUTEROL SULFATE
     Route: 065
  23. MOMETASONE FUROATE [Concomitant]
     Active Substance: MOMETASONE FUROATE
     Route: 065
  24. LISINOPRIL [Concomitant]
     Active Substance: LISINOPRIL
     Route: 065
  25. GABAPENTIN [Concomitant]
     Active Substance: GABAPENTIN
     Route: 065
  26. KLOR-CON [Concomitant]
     Active Substance: POTASSIUM CHLORIDE
     Route: 065
  27. CRESTOR [Concomitant]
     Active Substance: ROSUVASTATIN CALCIUM
     Route: 065
  28. MOVANTIK [Concomitant]
     Active Substance: NALOXEGOL OXALATE
     Route: 065
  29. METOPROLOL SUCCINATE [Concomitant]
     Active Substance: METOPROLOL SUCCINATE
     Route: 065
  30. DIVALPROEX SODIUM [Concomitant]
     Active Substance: DIVALPROEX SODIUM
     Route: 065
  31. PROMETHAZINE [Concomitant]
     Active Substance: PROMETHAZINE HYDROCHLORIDE
     Route: 065
  32. METHOCARBAMOL [Concomitant]
     Active Substance: METHOCARBAMOL
     Route: 065
  33. COL RITE STOOL SOFTENER [Concomitant]
     Route: 065
  34. OCUVITE [ASCORBIC ACID;RETINOL;TOCOPHEROL] [Concomitant]
     Route: 065
  35. XYZAL [Concomitant]
     Active Substance: LEVOCETIRIZINE DIHYDROCHLORIDE
     Route: 065
  36. MAGNESIUM [Concomitant]
     Active Substance: MAGNESIUM
     Route: 065
  37. BENZONATATE [Concomitant]
     Active Substance: BENZONATATE
     Route: 065
  38. VESICARE [Concomitant]
     Active Substance: SOLIFENACIN SUCCINATE
     Route: 065
  39. PERCOCET [Concomitant]
     Active Substance: ACETAMINOPHEN\OXYCODONE HYDROCHLORIDE
     Route: 065
  40. C 500 [ASCORBIC ACID] [Concomitant]
     Route: 065
  41. PHENERGAN [Concomitant]
     Active Substance: PROMETHAZINE HYDROCHLORIDE
  42. TORADOL [Concomitant]
     Active Substance: KETOROLAC TROMETHAMINE
  43. VIRTUSSIN AC [Concomitant]
     Active Substance: CODEINE PHOSPHATE\GUAIFENESIN
  44. ROBAXIN [Concomitant]
     Active Substance: METHOCARBAMOL
     Route: 065
  45. HERBALS\TURMERIC [Concomitant]
     Active Substance: HERBALS\TURMERIC
     Route: 065
  46. FLUTICASONE [Concomitant]
     Active Substance: FLUTICASONE
     Route: 065
  47. MUCINEX [Concomitant]
     Active Substance: GUAIFENESIN
     Route: 065
  48. PULMICORT TURBUHALER [Concomitant]
     Active Substance: BUDESONIDE
  49. CLARITIN [Concomitant]
     Active Substance: LORATADINE
  50. MOBIC [Concomitant]
     Active Substance: MELOXICAM
     Dosage: UNK
  51. HYDROXYZINE PAMOATE [Concomitant]
     Active Substance: HYDROXYZINE PAMOATE
  52. FERROUS SULFATE [Concomitant]
     Active Substance: FERROUS SULFATE
  53. VITAMIN C [Concomitant]
     Active Substance: ASCORBIC ACID
  54. SODIUM CHLORIDE [Concomitant]
     Active Substance: SODIUM CHLORIDE
  55. FUROSEMIDE [Concomitant]
     Active Substance: FUROSEMIDE
  56. FLUTICASONE PROPIONATE [Concomitant]
     Active Substance: FLUTICASONE PROPIONATE
  57. ALBUTEROL SULFATE [Concomitant]
     Active Substance: ALBUTEROL SULFATE
  58. LIDOCAINE [Concomitant]
     Active Substance: LIDOCAINE

REACTIONS (27)
  - Pneumonia [Unknown]
  - Fall [Recovering/Resolving]
  - Wound infection [Unknown]
  - Medical device battery replacement [Unknown]
  - Loss of consciousness [Recovering/Resolving]
  - Medical device site infection [Recovering/Resolving]
  - Pseudomonas infection [Recovering/Resolving]
  - Spinal disorder [Unknown]
  - Anal incontinence [Unknown]
  - Balance disorder [Unknown]
  - Flushing [Unknown]
  - Cough [Unknown]
  - Fatigue [Unknown]
  - Dizziness [Unknown]
  - Chills [Unknown]
  - Diarrhoea [Unknown]
  - Headache [Recovering/Resolving]
  - Nausea [Unknown]
  - Chronic obstructive pulmonary disease [Unknown]
  - Muscular weakness [Recovering/Resolving]
  - Pain in extremity [Recovering/Resolving]
  - Arthralgia [Recovering/Resolving]
  - Poor quality sleep [Recovering/Resolving]
  - Tremor [Recovering/Resolving]
  - Nervousness [Unknown]
  - Drug hypersensitivity [Unknown]
  - Urinary tract infection [Unknown]

NARRATIVE: CASE EVENT DATE: 20220721
